FAERS Safety Report 15721098 (Version 1)
Quarter: 2018Q4

REPORT INFORMATION
  Report Type: Spontaneous
  Country: BR (occurrence: BR)
  Receive Date: 20181214
  Receipt Date: 20181214
  Transmission Date: 20190205
  Serious: Yes (Death, Hospitalization, Other)
  Sender: FDA-Public Use
  Company Number: BR-VISTAPHARM, INC.-VER201804-000564

PATIENT
  Age: 22 Year
  Sex: Female

DRUGS (4)
  1. DIMENHYDRINATE. [Concomitant]
     Active Substance: DIMENHYDRINATE
     Indication: HYPEREMESIS GRAVIDARUM
     Dosage: UNKNOWN (FOR ABOUT 45 DAYS)
  2. VITAMIN B6 [Concomitant]
     Active Substance: PYRIDOXINE HYDROCHLORIDE
     Indication: HYPEREMESIS GRAVIDARUM
     Dosage: UNKNOWN (FOR ABOUT 45 DAYS)
  3. METOCLOPRAMIDE. [Suspect]
     Active Substance: METOCLOPRAMIDE
     Indication: HYPEREMESIS GRAVIDARUM
  4. FOLIC ACID. [Concomitant]
     Active Substance: FOLIC ACID
     Indication: HYPEREMESIS GRAVIDARUM
     Dosage: 5 MG/DAY (FOR ABOUT 45 DAYS)

REACTIONS (3)
  - Exposure during pregnancy [Unknown]
  - Neuroleptic malignant syndrome [Fatal]
  - Foetal death [Unknown]
